FAERS Safety Report 10455196 (Version 2)
Quarter: 2015Q1

REPORT INFORMATION
  Report Type: Spontaneous
  Country: DE (occurrence: DE)
  Receive Date: 20140916
  Receipt Date: 20150203
  Transmission Date: 20150720
  Serious: Yes (Other)
  Sender: FDA-Public Use
  Company Number: DE-AMGEN-DEUSP2014068936

PATIENT
  Sex: Female

DRUGS (2)
  1. RISEDRONATE SODIUM/ CALCIUM [Concomitant]
  2. PROLIA [Suspect]
     Active Substance: DENOSUMAB
     Indication: PRODUCT USED FOR UNKNOWN INDICATION
     Dosage: UNK
     Route: 065
     Dates: start: 201207

REACTIONS (6)
  - Hypertension [Not Recovered/Not Resolved]
  - Osteomyelitis [Recovered/Resolved]
  - Physiotherapy [Unknown]
  - Osteonecrosis of jaw [Recovered/Resolved]
  - No therapeutic response [Unknown]
  - Sleep apnoea syndrome [Unknown]

NARRATIVE: CASE EVENT DATE: 2014
